FAERS Safety Report 19100289 (Version 1)
Quarter: 2021Q2

REPORT INFORMATION
  Report Type: Report from Study
  Country: None (occurrence: US)
  Receive Date: 20210407
  Receipt Date: 20210407
  Transmission Date: 20210717
  Serious: Yes (Other)
  Sender: FDA-Public Use
  Company Number: US-ABBVIE-21K-163-3840305-00

PATIENT
  Age: 41 Year
  Sex: Female
  Weight: 136.2 kg

DRUGS (2)
  1. DUOPA [Suspect]
     Active Substance: CARBIDOPA\LEVODOPA
     Indication: PARKINSON^S DISEASE
     Dosage: TITRATION PHASE
     Route: 050
     Dates: start: 20210324, end: 20210329
  2. DUOPA [Suspect]
     Active Substance: CARBIDOPA\LEVODOPA

REACTIONS (5)
  - Stoma site irritation [Not Recovered/Not Resolved]
  - Gait inability [Recovered/Resolved]
  - Malaise [Recovered/Resolved]
  - Stoma site infection [Recovering/Resolving]
  - Mobility decreased [Recovered/Resolved]

NARRATIVE: CASE EVENT DATE: 2021
